FAERS Safety Report 22201879 (Version 1)
Quarter: 2023Q2

REPORT INFORMATION
  Report Type: Report from Study
  Country: FR (occurrence: FR)
  Receive Date: 20230412
  Receipt Date: 20230412
  Transmission Date: 20230721
  Serious: Yes (Other)
  Sender: FDA-Public Use
  Company Number: FR-GILEAD-2022-0595405

PATIENT
  Sex: Female
  Weight: 70 kg

DRUGS (30)
  1. SACITUZUMAB GOVITECAN-HZIY [Suspect]
     Active Substance: SACITUZUMAB GOVITECAN-HZIY
     Indication: Triple negative breast cancer
     Dosage: 10 MG/KG, C1D1 ONLY
     Route: 042
     Dates: start: 20220428, end: 20220428
  2. SACITUZUMAB GOVITECAN-HZIY [Suspect]
     Active Substance: SACITUZUMAB GOVITECAN-HZIY
     Dosage: 10 MG/KG, CYCLE 2 DAY 1, 8
     Route: 042
     Dates: start: 20220519, end: 20220527
  3. SACITUZUMAB GOVITECAN-HZIY [Suspect]
     Active Substance: SACITUZUMAB GOVITECAN-HZIY
     Dosage: 7.5 MG/KG, CYCLE 3 DAY 1, 8
     Route: 042
     Dates: start: 20220609, end: 20221021
  4. SACITUZUMAB GOVITECAN-HZIY [Suspect]
     Active Substance: SACITUZUMAB GOVITECAN-HZIY
     Dosage: 7.5 MG/KG, CYCLE 4 DAY 1, 8
     Route: 042
     Dates: start: 20220630, end: 20220707
  5. SACITUZUMAB GOVITECAN-HZIY [Suspect]
     Active Substance: SACITUZUMAB GOVITECAN-HZIY
     Dosage: 7.5 MG/KG, CYCLE 5 DAY 1, 8
     Route: 042
     Dates: start: 20220721, end: 20220728
  6. SACITUZUMAB GOVITECAN-HZIY [Suspect]
     Active Substance: SACITUZUMAB GOVITECAN-HZIY
     Dosage: 6.5 MG/KG, CYCLE 6 DAY 1, 8 (35% DOSE REDUCTION)
     Route: 042
     Dates: start: 20220811, end: 20220818
  7. SACITUZUMAB GOVITECAN-HZIY [Suspect]
     Active Substance: SACITUZUMAB GOVITECAN-HZIY
     Dosage: 6.5 MG/KG, CYCLE 7 DAY 1, 8
     Route: 042
     Dates: start: 20220901, end: 20220908
  8. SACITUZUMAB GOVITECAN-HZIY [Suspect]
     Active Substance: SACITUZUMAB GOVITECAN-HZIY
     Dosage: 6.5 MG/KG, CYCLE 8 DAY 1, 8
     Route: 042
     Dates: start: 20220922, end: 20220929
  9. SACITUZUMAB GOVITECAN-HZIY [Suspect]
     Active Substance: SACITUZUMAB GOVITECAN-HZIY
     Dosage: 6.5 MG/KG, CYCLE 9 DAY 1 ONLY
     Route: 042
     Dates: start: 20221013, end: 20221013
  10. SACITUZUMAB GOVITECAN-HZIY [Suspect]
     Active Substance: SACITUZUMAB GOVITECAN-HZIY
     Dosage: UNK
     Route: 042
     Dates: end: 20221028
  11. FERROUS FUMARATE [Suspect]
     Active Substance: FERROUS FUMARATE
     Indication: Product used for unknown indication
     Dosage: 66 MG, 2 TABS PER DAY
     Route: 048
     Dates: start: 20220719, end: 20221013
  12. ACETAMINOPHEN [Concomitant]
     Active Substance: ACETAMINOPHEN
  13. DILTIAZEM HYDROCHLORIDE [Concomitant]
     Active Substance: DILTIAZEM HYDROCHLORIDE
  14. LANSOPRAZOLE [Concomitant]
     Active Substance: LANSOPRAZOLE
  15. BILASTINE [Concomitant]
     Active Substance: BILASTINE
  16. ESCITALOPRAM [Concomitant]
     Active Substance: ESCITALOPRAM OXALATE
  17. LORAZEPAM [Concomitant]
     Active Substance: LORAZEPAM
  18. CALCIUM CARBONATE\CHOLECALCIFEROL [Concomitant]
     Active Substance: CALCIUM CARBONATE\CHOLECALCIFEROL
  19. XGEVA [Concomitant]
     Active Substance: DENOSUMAB
  20. DEXAMETHASONE [Concomitant]
     Active Substance: DEXAMETHASONE
  21. POLARAMINE [Concomitant]
     Active Substance: DEXCHLORPHENIRAMINE MALEATE
  22. SMECTA [Concomitant]
     Active Substance: MONTMORILLONITE
  23. LOPERAMIDE [Concomitant]
     Active Substance: LOPERAMIDE
  24. PHLOROGLUCINOL [Concomitant]
     Active Substance: PHLOROGLUCINOL
  25. IOVERSOL [Concomitant]
     Active Substance: IOVERSOL
  26. RACECADOTRIL [Concomitant]
     Active Substance: RACECADOTRIL
  27. MONTMORILLONITE [Concomitant]
     Active Substance: MONTMORILLONITE
  28. TRAMADOL [Concomitant]
     Active Substance: TRAMADOL
  29. CICLETANINE HYDROCHLORIDE [Concomitant]
     Active Substance: CICLETANINE HYDROCHLORIDE
  30. IMODIUM [Concomitant]
     Active Substance: LOPERAMIDE HYDROCHLORIDE

REACTIONS (3)
  - Gastrointestinal toxicity [Recovered/Resolved]
  - Off label use [Unknown]
  - Inappropriate schedule of product administration [Unknown]

NARRATIVE: CASE EVENT DATE: 20220530
